FAERS Safety Report 4568442-1 (Version None)
Quarter: 2005Q1

REPORT INFORMATION
  Report Type: 
  Country: None (occurrence: None)
  Receive Date: 20050131
  Receipt Date: 20050114
  Transmission Date: 20050727
  Serious: No
  Sender: FDA-Public Use
  Company Number: 2005SE00358

PATIENT
  Age: 54 Year
  Sex: Male
  Weight: 74 kg

DRUGS (3)
  1. BETALOC ZOK ^ASTRA^ [Suspect]
     Indication: ARRHYTHMIA PROPHYLAXIS
     Dosage: 12.5 MG BID PO
     Route: 048
     Dates: start: 20041119, end: 20041125
  2. BETALOC ZOK ^ASTRA^ [Suspect]
     Indication: HYPERTENSION
     Dosage: 12.5 MG BID PO
     Route: 048
     Dates: start: 20041119, end: 20041125
  3. PRESTARIUM [Concomitant]

REACTIONS (5)
  - ANXIETY [None]
  - ARRHYTHMIA [None]
  - ASTHENIA [None]
  - ATRIAL FIBRILLATION [None]
  - CHEST DISCOMFORT [None]
